FAERS Safety Report 7725986-9 (Version None)
Quarter: 2011Q3

REPORT INFORMATION
  Report Type: 
  Country: None (occurrence: None)
  Receive Date: 20110902
  Receipt Date: 20110818
  Transmission Date: 20111222
  Serious: Yes (Life-Threatening, Hospitalization)
  Sender: FDA-Public Use
  Company Number: JP-WATSON-2011-10297

PATIENT
  Age: 63 Year
  Sex: Male

DRUGS (6)
  1. LIDOCAINE HYDROCHLORIDE [Suspect]
     Indication: MAINTENANCE OF ANAESTHESIA
     Dosage: 2 ML  OF 1.5 %
     Route: 008
  2. LIDOCAINE HYDROCHLORIDE [Suspect]
     Dosage: 1.5%
  3. VECURONIUM BROMIDE [Suspect]
     Indication: INDUCTION OF ANAESTHESIA
     Dosage: 6 MG, UNKNOWN
     Route: 008
  4. PROPOFOL [Suspect]
     Indication: ANAESTHESIA
     Dosage: 2.5 TO 3.0 UG-ML-1
  5. ADRENALIN                          /00003901/ [Suspect]
     Indication: EPIDURAL ANAESTHESIA
     Dosage: UNK
  6. FENTANYL CITRATE [Suspect]
     Indication: INDUCTION OF ANAESTHESIA
     Dosage: 0.2 MG, UNKNOWN

REACTIONS (2)
  - VENTRICULAR FIBRILLATION [None]
  - PRINZMETAL ANGINA [None]
